FAERS Safety Report 23871671 (Version 2)
Quarter: 2024Q3

REPORT INFORMATION
  Report Type: Spontaneous
  Country: US (occurrence: US)
  Receive Date: 20240519
  Receipt Date: 20240806
  Transmission Date: 20241016
  Serious: No
  Sender: Tarsus Pharmaceuticals
  Company Number: US-TARSUS PHARMACEUTICALS-TSP-US-2024-000151

PATIENT
  Age: 57 Year
  Sex: Male

DRUGS (2)
  1. XDEMVY [Suspect]
     Active Substance: LOTILANER
     Indication: Arthropod infestation
     Dosage: 1 DROP, BID
     Route: 047
     Dates: start: 20240322
  2. XDEMVY [Suspect]
     Active Substance: LOTILANER
     Indication: Dry eye

REACTIONS (2)
  - Extra dose administered [Unknown]
  - Device delivery system issue [Unknown]
